FAERS Safety Report 8387133-2 (Version None)
Quarter: 2012Q1

REPORT INFORMATION
  Report Type: 
  Country: None (occurrence: None)
  Receive Date: 20120323
  Receipt Date: 20110427
  Transmission Date: 20120608
  Serious: Yes (Other)
  Sender: FDA-Public Use
  Company Number: 163-21880-11040283

PATIENT
  Age: 57 Year
  Sex: Male

DRUGS (2)
  1. REVLIMID [Suspect]
     Indication: MULTIPLE MYELOMA
     Dosage: 25 MG, DAILY FOR 21 DAYS, PO; 25 MG, DAILY FOR 21 DAYS, PO
     Route: 048
     Dates: start: 20080925
  2. REVLIMID [Suspect]
     Indication: MULTIPLE MYELOMA
     Dosage: 25 MG, DAILY FOR 21 DAYS, PO; 25 MG, DAILY FOR 21 DAYS, PO
     Route: 048
     Dates: start: 20110328

REACTIONS (2)
  - BRONCHITIS [None]
  - PNEUMONIA [None]
